FAERS Safety Report 12816586 (Version 1)
Quarter: 2016Q4

REPORT INFORMATION
  Report Type: Spontaneous
  Country: US (occurrence: US)
  Receive Date: 20161006
  Receipt Date: 20161006
  Transmission Date: 20170207
  Serious: No
  Sender: FDA-Public Use
  Company Number: US-NOVEN PHARMACEUTICALS, INC.-US2016000519

PATIENT

DRUGS (4)
  1. COMBIPATCH [Suspect]
     Active Substance: ESTRADIOL\NORETHINDRONE ACETATE
     Indication: HOT FLUSH
     Dosage: 50/140 MG, 2/WK
     Route: 062
     Dates: start: 2015, end: 20160404
  2. COMBIPATCH [Suspect]
     Active Substance: ESTRADIOL\NORETHINDRONE ACETATE
     Indication: NIGHT SWEATS
  3. PROZAC [Concomitant]
     Active Substance: FLUOXETINE HYDROCHLORIDE
     Dosage: 30 MG, QD
  4. GABAPENTIN. [Concomitant]
     Active Substance: GABAPENTIN
     Dosage: 100 MG, UNK

REACTIONS (14)
  - Sluggishness [Unknown]
  - Application site pruritus [Unknown]
  - Application site scar [Unknown]
  - Incorrect drug administration duration [Not Recovered/Not Resolved]
  - Vertigo [Not Recovered/Not Resolved]
  - Product adhesion issue [Unknown]
  - Lethargy [Unknown]
  - Drug administered at inappropriate site [Unknown]
  - Application site urticaria [Unknown]
  - Hot flush [Unknown]
  - Palpitations [Unknown]
  - Application site burn [Unknown]
  - Application site swelling [Unknown]
  - Weight increased [Unknown]

NARRATIVE: CASE EVENT DATE: 201601
